FAERS Safety Report 4305330-X (Version None)
Quarter: 2004Q1

REPORT INFORMATION
  Report Type: 
  Country: None (occurrence: None)
  Receive Date: 20040226
  Receipt Date: 20030609
  Transmission Date: 20041129
  Serious: No
  Sender: FDA-Public Use
  Company Number: US-BRISTOL-MYERS SQUIBB COMPANY-12295762

PATIENT
  Age: 40 Year
  Sex: Male

DRUGS (9)
  1. TAXOL [Suspect]
     Indication: LUNG NEOPLASM MALIGNANT
     Route: 042
     Dates: start: 20030513, end: 20030513
  2. TAGAMET [Concomitant]
     Indication: PREMEDICATION
     Dates: start: 20030513, end: 20030513
  3. BENADRYL [Concomitant]
     Indication: PREMEDICATION
     Dates: start: 20030513, end: 20030513
  4. ANZEMET [Concomitant]
     Indication: PREMEDICATION
     Dates: start: 20030513, end: 20030513
  5. DEXAMETHASONE [Concomitant]
     Indication: PREMEDICATION
     Route: 042
     Dates: start: 20030513, end: 20030513
  6. MS CONTIN [Concomitant]
     Dosage: DOSE VALUE: 60 MG IN AM AND 90 MG IN PM.
  7. MS CONTIN [Concomitant]
     Dosage: DOSE VALUE: 2-4 MG.
  8. COLACE [Concomitant]
  9. COUMADIN [Concomitant]
     Dosage: DOSE VALUE: 3 MG ALTERNATING WITH 4 MG.

REACTIONS (2)
  - DYSPNOEA [None]
  - HEADACHE [None]
